FAERS Safety Report 10066080 (Version 1)
Quarter: 2014Q1

REPORT INFORMATION
  Report Type: Spontaneous
  Country: US (occurrence: None)
  Receive Date: 20140328
  Receipt Date: 20140328
  Transmission Date: 20141002
  Serious: No
  Sender: FDA-Public Use
  Company Number: 1000051915

PATIENT
  Age: 78 Year
  Sex: Male

DRUGS (1)
  1. LINZESS (LINACLOTIDE) (145 MICROGRAM, CAPSULES) [Suspect]
     Route: 048
     Dates: start: 201311, end: 201311

REACTIONS (1)
  - Diarrhoea [None]
